FAERS Safety Report 4386782-6 (Version None)
Quarter: 2004Q2

REPORT INFORMATION
  Report Type: 
  Country: None (occurrence: None)
  Receive Date: 20040607
  Receipt Date: 20030617
  Transmission Date: 20050107
  Serious: Yes (Other)
  Sender: FDA-Public Use
  Company Number: 335131

PATIENT
  Age: 25 Year
  Sex: Female
  Weight: 81.2 kg

DRUGS (5)
  1. ACCUTANE [Suspect]
     Indication: DRUG USE FOR UNKNOWN INDICATION
     Dosage: 60 MG DAILY ORAL
     Route: 048
     Dates: start: 20030115
  2. EFFEXOR [Concomitant]
  3. BIRTH CONTROL PILL (ORAL CONTRACEPTIVE NOS) [Concomitant]
  4. XANAX [Concomitant]
  5. PURNIETHOL (MERCAPTOPURINE) [Concomitant]

REACTIONS (3)
  - ADVERSE EVENT [None]
  - HEPATITIS [None]
  - HEPATITIS TOXIC [None]
